FAERS Safety Report 6128089-2 (Version None)
Quarter: 2009Q1

REPORT INFORMATION
  Report Type: 
  Country: None (occurrence: None)
  Receive Date: 20090323
  Receipt Date: 20090225
  Transmission Date: 20090719
  Serious: Yes (Hospitalization)
  Sender: FDA-Public Use
  Company Number: JP-BRISTOL-MYERS SQUIBB COMPANY-14380844

PATIENT
  Age: 28 Year
  Sex: Female
  Weight: 40 kg

DRUGS (6)
  1. ABILIFY [Suspect]
     Indication: BIPOLAR I DISORDER
     Dosage: 24 MG/D FROM 02OCT-16OCT08, REDUCED TO 12MG/DAY 16OCT2008 STOPPED:10NOV2008
     Route: 048
     Dates: start: 20081002, end: 20081110
  2. LIMAS [Concomitant]
  3. BROTIZOLAM [Concomitant]
     Dosage: FORMULATION : TABLET
     Dates: start: 20080927
  4. LOXONIN [Concomitant]
     Dosage: FORMULATION : TABLET
     Dates: start: 20080928
  5. MOHRUS [Concomitant]
     Dosage: MOHRUS TAPE
     Dates: start: 20081009
  6. GASMOTIN [Concomitant]
     Dosage: FORMULATION :1 % POWDER
     Dates: start: 20081016

REACTIONS (8)
  - BIPOLAR I DISORDER [None]
  - DIZZINESS POSTURAL [None]
  - DYSARTHRIA [None]
  - HALLUCINATION, AUDITORY [None]
  - HOT FLUSH [None]
  - NASOPHARYNGITIS [None]
  - TREMOR [None]
  - VOMITING [None]
